FAERS Safety Report 8218910-6 (Version None)
Quarter: 2012Q1

REPORT INFORMATION
  Report Type: 
  Country: None (occurrence: None)
  Receive Date: 20120319
  Receipt Date: 20120315
  Transmission Date: 20120608
  Serious: Yes (Death, Hospitalization)
  Sender: FDA-Public Use
  Company Number: PHFR2012GB001740

PATIENT
  Sex: Female

DRUGS (4)
  1. CLOMIPRAMINE HCL [Concomitant]
     Dosage: UNK
     Dates: start: 20111201
  2. DIAZEPAM [Concomitant]
  3. CLOZARIL [Suspect]
     Indication: SCHIZOPHRENIA
     Dates: start: 20030815
  4. SULPIRIDE [Concomitant]
     Dates: start: 20111201

REACTIONS (1)
  - METASTATIC NEOPLASM [None]
